FAERS Safety Report 11824161 (Version 3)
Quarter: 2016Q1

REPORT INFORMATION
  Report Type: Report from Study
  Country: US (occurrence: US)
  Receive Date: 20151210
  Receipt Date: 20160205
  Transmission Date: 20160525
  Serious: Yes (Other)
  Sender: FDA-Public Use
  Company Number: US-B.I. PHARMACEUTICALS,INC./RIDGEFIELD-2015-BI-67778BI

PATIENT
  Age: 66 Year
  Sex: Female
  Weight: 51.1 kg

DRUGS (23)
  1. BIBW 2992 [Suspect]
     Active Substance: AFATINIB
     Indication: SQUAMOUS CELL CARCINOMA OF HEAD AND NECK
     Dosage: 20 MG
     Route: 048
  2. BIBW 2992 [Suspect]
     Active Substance: AFATINIB
     Route: 065
     Dates: start: 20151026
  3. ALBUTEROL. [Concomitant]
     Active Substance: ALBUTEROL
     Indication: PRODUCT USED FOR UNKNOWN INDICATION
     Route: 048
     Dates: start: 20141222
  4. BIBW 2992 [Suspect]
     Active Substance: AFATINIB
     Route: 065
     Dates: start: 20150803
  5. CISPLATIN. [Suspect]
     Active Substance: CISPLATIN
     Indication: ADJUVANT THERAPY
     Dosage: 280MG/^M2
     Route: 042
     Dates: start: 20141027, end: 20141215
  6. CENTRUM SILVER [Concomitant]
     Active Substance: MINERALS\VITAMINS
     Indication: PRODUCT USED FOR UNKNOWN INDICATION
     Dosage: 1 ANZ
     Route: 065
  7. XANAX [Concomitant]
     Active Substance: ALPRAZOLAM
     Indication: PRODUCT USED FOR UNKNOWN INDICATION
     Dosage: 0.75 MG
     Route: 050
     Dates: start: 20150309
  8. CELEXA [Concomitant]
     Active Substance: CITALOPRAM HYDROBROMIDE
     Indication: PRODUCT USED FOR UNKNOWN INDICATION
     Dosage: 20 MG
     Route: 050
     Dates: start: 20150309
  9. IMODIUM [Concomitant]
     Active Substance: LOPERAMIDE HYDROCHLORIDE
     Indication: DIARRHOEA
     Dosage: ROUTE: PERCUTANEOUS ENDOSCOPIC GASTROSTOMY
     Route: 050
     Dates: start: 20150526
  10. BIBW 2992 [Suspect]
     Active Substance: AFATINIB
     Route: 065
     Dates: start: 20150831
  11. CARBOPLATIN. [Concomitant]
     Active Substance: CARBOPLATIN
     Indication: PRODUCT USED FOR UNKNOWN INDICATION
     Route: 065
  12. TRAZODONE [Concomitant]
     Active Substance: TRAZODONE HYDROCHLORIDE
     Indication: PRODUCT USED FOR UNKNOWN INDICATION
     Dosage: 50 MG
     Route: 048
     Dates: start: 201409
  13. BIBW 2992 [Suspect]
     Active Substance: AFATINIB
     Route: 065
     Dates: start: 20150511
  14. LINZESS [Concomitant]
     Active Substance: LINACLOTIDE
     Indication: PRODUCT USED FOR UNKNOWN INDICATION
     Route: 065
     Dates: start: 201503, end: 201505
  15. REGLAN [Concomitant]
     Active Substance: METOCLOPRAMIDE HYDROCHLORIDE
     Indication: PRODUCT USED FOR UNKNOWN INDICATION
     Dosage: 10 MG
     Route: 050
     Dates: start: 20150309
  16. HYDROCORTISONE. [Concomitant]
     Active Substance: HYDROCORTISONE
     Indication: RASH
     Dosage: STRENGTH: 0.2%
     Route: 061
     Dates: start: 20150518, end: 20150601
  17. BIBW 2992 [Suspect]
     Active Substance: AFATINIB
     Route: 065
     Dates: start: 20150608
  18. BIBW 2992 [Suspect]
     Active Substance: AFATINIB
     Route: 065
     Dates: start: 20150928
  19. BIBW 2992 [Suspect]
     Active Substance: AFATINIB
     Route: 065
     Dates: start: 20150706
  20. BIBW 2992 [Suspect]
     Active Substance: AFATINIB
     Route: 065
     Dates: start: 20151123
  21. COREG [Concomitant]
     Active Substance: CARVEDILOL
     Indication: PRODUCT USED FOR UNKNOWN INDICATION
     Dosage: 12.5 MG
     Route: 050
     Dates: start: 20150427, end: 20150707
  22. BIBW 2992 [Suspect]
     Active Substance: AFATINIB
     Route: 065
     Dates: start: 20150518
  23. LOSARTAN. [Concomitant]
     Active Substance: LOSARTAN
     Indication: HYPERTENSION
     Dosage: 100 MG
     Route: 048
     Dates: start: 20150707

REACTIONS (1)
  - Retinal tear [Recovered/Resolved]

NARRATIVE: CASE EVENT DATE: 20120704
